FAERS Safety Report 6780745-9 (Version None)
Quarter: 2010Q2

REPORT INFORMATION
  Report Type: 
  Country: None (occurrence: None)
  Receive Date: 20100621
  Receipt Date: 20100614
  Transmission Date: 20101027
  Serious: Yes (Hospitalization)
  Sender: FDA-Public Use
  Company Number: DE-ELI_LILLY_AND_COMPANY-DE201006003729

PATIENT
  Sex: Male
  Weight: 66 kg

DRUGS (18)
  1. PEMETREXED [Suspect]
     Indication: NON-SMALL CELL LUNG CANCER
     Dosage: 500 MG/M2, OTHER
     Route: 042
     Dates: start: 20100122, end: 20100422
  2. PEMETREXED [Suspect]
     Dosage: 500 MG/M2, DAY ONE EVERY 21 DAYS
     Route: 042
     Dates: start: 20100521
  3. CETUXIMAB [Suspect]
     Indication: NON-SMALL CELL LUNG CANCER
     Dosage: 400 MG/M2, WEEKLY (1/W)
     Route: 042
     Dates: start: 20100122
  4. CETUXIMAB [Suspect]
     Dosage: 250 MG/M2, WEEKLY (1/W)
     Route: 042
     Dates: start: 20100101, end: 20100506
  5. CETUXIMAB [Suspect]
     Dosage: 250 MG/M2, WEEKLY (1/W)
     Route: 042
     Dates: start: 20100521
  6. CISPLATIN [Suspect]
     Indication: NON-SMALL CELL LUNG CANCER
     Dosage: 75 MG/M2, DAY ONE EVERY 21 DAYS
     Route: 042
     Dates: start: 20100122, end: 20100422
  7. FOLIC ACID [Concomitant]
     Indication: PROPHYLAXIS
     Dosage: UNK, UNK
     Dates: start: 20100113
  8. VITAMIN B-12 [Concomitant]
     Indication: PROPHYLAXIS
     Dates: start: 20100113
  9. CORTICOSTEROID NOS [Concomitant]
     Indication: PROPHYLAXIS
     Dates: start: 20100122
  10. ANTIHISTAMINES [Concomitant]
     Indication: PROPHYLAXIS
     Dates: start: 20100122
  11. NOVALGIN [Concomitant]
     Indication: PAIN
     Dates: start: 20091102
  12. TARGIN [Concomitant]
     Indication: PAIN
     Dates: start: 20091102
  13. PANTOPRAZOLE [Concomitant]
     Indication: PROPHYLAXIS
     Dates: start: 20091102
  14. ZOFRAN [Concomitant]
     Indication: PROPHYLAXIS
     Dates: start: 20100122
  15. DELTAJONIN [Concomitant]
     Indication: DEHYDRATION
     Dates: start: 20100601
  16. OLICLINOMEL [Concomitant]
     Indication: SUPPLEMENTATION THERAPY
     Dates: start: 20100601
  17. CALCIUM CARBONATE [Concomitant]
     Indication: HYPOCALCAEMIA
     Dates: start: 20100602
  18. POTASSIUM CHLORIDE [Concomitant]
     Indication: HYPOKALAEMIA
     Dates: start: 20100602

REACTIONS (3)
  - CATHETER SITE INFECTION [None]
  - DIZZINESS [None]
  - GENERAL PHYSICAL HEALTH DETERIORATION [None]
